FAERS Safety Report 15923510 (Version 1)
Quarter: 2019Q1

REPORT INFORMATION
  Report Type: Spontaneous
  Country: FR (occurrence: FR)
  Receive Date: 20190206
  Receipt Date: 20190206
  Transmission Date: 20190417
  Serious: Yes (Hospitalization)
  Sender: FDA-Public Use
  Company Number: FR-ACCORD-105940

PATIENT
  Age: 69 Year
  Sex: Female
  Weight: 77 kg

DRUGS (7)
  1. FEMARA [Concomitant]
     Active Substance: LETROZOLE
     Dosage: 2.5 MG
     Route: 048
  2. EUTHYROX [Concomitant]
     Active Substance: LEVOTHYROXINE SODIUM
     Dosage: 50 MICROGRAMS
     Route: 048
  3. UVEDOSE [Concomitant]
     Active Substance: CHOLECALCIFEROL
     Dosage: STRENGHT: 100,000 IU ORAL SOLUTION IN AMPOULE
  4. IRBESARTAN. [Suspect]
     Active Substance: IRBESARTAN
     Route: 048
  5. SIMVASTATIN. [Suspect]
     Active Substance: SIMVASTATIN
     Route: 048
  6. TENORMINE [Suspect]
     Active Substance: ATENOLOL
     Route: 048
  7. STILNOX [Suspect]
     Active Substance: ZOLPIDEM TARTRATE
     Dosage: STRENGHT: 10 MG SCORED FILM-COATED TABLET
     Route: 048

REACTIONS (3)
  - Sinus bradycardia [Recovered/Resolved]
  - Hypotension [Recovered/Resolved]
  - Renal failure [Recovered/Resolved]

NARRATIVE: CASE EVENT DATE: 20180403
